FAERS Safety Report 7346369-X (Version None)
Quarter: 2011Q1

REPORT INFORMATION
  Report Type: 
  Country: None (occurrence: None)
  Receive Date: 20110301
  Receipt Date: 20110214
  Transmission Date: 20110831
  Serious: Yes (Other)
  Sender: FDA-Public Use
  Company Number: 2010BI030050

PATIENT
  Age: 42 Year
  Sex: Male
  Weight: 96 kg

DRUGS (9)
  1. PREDNISOLONE [Concomitant]
  2. FLUDEOXYGLUCOSE [Concomitant]
  3. RITUXIMAB (GENETICAL RECOMBINATION) [Concomitant]
  4. DOXORUBICIN HCL [Concomitant]
  5. ZEVALIN [Suspect]
     Indication: FOLLICLE CENTRE LYMPHOMA, FOLLICULAR GRADE I, II, III STAGE II
     Dosage: 1413 MBQ; 1X; IV
     Route: 042
     Dates: start: 20091111, end: 20091118
  6. RITUXIMAB [Concomitant]
  7. URSO 250 [Concomitant]
  8. SOLU-CORTEF [Concomitant]
  9. VINCRISTINE SULFATE [Concomitant]

REACTIONS (4)
  - WHITE BLOOD CELL COUNT DECREASED [None]
  - HEPATIC STEATOSIS [None]
  - LIVER DISORDER [None]
  - PLATELET COUNT DECREASED [None]
